FAERS Safety Report 16970821 (Version 1)
Quarter: 2019Q4

REPORT INFORMATION
  Report Type: Spontaneous
  Country: CN (occurrence: CN)
  Receive Date: 20191029
  Receipt Date: 20191029
  Transmission Date: 20200122
  Serious: Yes (Death)
  Sender: FDA-Public Use
  Company Number: CN-DSJP-DSJ-2019-140745

PATIENT

DRUGS (2)
  1. OLMESARTAN MEDOXOMIL. [Suspect]
     Active Substance: OLMESARTAN MEDOXOMIL
  2. SACUBITRIL VALSARTAN SODIUM HYDRATE [Suspect]
     Active Substance: SACUBITRIL\VALSARTAN

REACTIONS (6)
  - Cardiac death [Fatal]
  - Myocardial ischaemia [Unknown]
  - Oedema [Unknown]
  - Hypotension [Unknown]
  - Death [Fatal]
  - Hyperkalaemia [Unknown]
